FAERS Safety Report 16260929 (Version 3)
Quarter: 2019Q2

REPORT INFORMATION
  Report Type: Spontaneous
  Country: JP (occurrence: JP)
  Receive Date: 20190501
  Receipt Date: 20190514
  Transmission Date: 20190711
  Serious: Yes (Hospitalization, Other)
  Sender: FDA-Public Use
  Company Number: JP-PFIZER INC-2019186292

PATIENT
  Age: 7 Decade
  Sex: Male

DRUGS (8)
  1. TS-1 [Concomitant]
     Active Substance: GIMERACIL\OTERACIL\TEGAFUR
     Indication: TUMOUR INVASION
  2. DABIGATRAN ETEXILATE MESILATE [Interacting]
     Active Substance: DABIGATRAN ETEXILATE MESYLATE
     Dosage: 300 MG/DAY, TWICE A DAY
     Route: 065
  3. CISPLATIN. [Suspect]
     Active Substance: CISPLATIN
     Indication: TUMOUR INVASION
  4. AMIODARONE HCL [Interacting]
     Active Substance: AMIODARONE HYDROCHLORIDE
     Dosage: 100 MG/DAY, ONCE A DAY
     Route: 048
  5. CISPLATIN. [Suspect]
     Active Substance: CISPLATIN
     Indication: METASTASES TO LIVER
  6. TS-1 [Concomitant]
     Active Substance: GIMERACIL\OTERACIL\TEGAFUR
     Indication: METASTASES TO LIVER
  7. CISPLATIN. [Suspect]
     Active Substance: CISPLATIN
     Indication: GASTRIC CANCER
     Dosage: UNK (DAY 8)
     Route: 065
  8. TS-1 [Concomitant]
     Active Substance: GIMERACIL\OTERACIL\TEGAFUR
     Indication: GASTRIC CANCER
     Dosage: 100 MG/DAY, TWICE A DAY
     Route: 048

REACTIONS (9)
  - Malaise [Recovering/Resolving]
  - Diarrhoea [Unknown]
  - Nausea [Unknown]
  - Acute kidney injury [Recovering/Resolving]
  - Dehydration [Unknown]
  - Decreased appetite [Recovering/Resolving]
  - Haemorrhagic diathesis [Unknown]
  - Drug interaction [Unknown]
  - Urine output decreased [Recovering/Resolving]
